FAERS Safety Report 24773006 (Version 2)
Quarter: 2025Q2

REPORT INFORMATION
  Report Type: Spontaneous
  Country: GB (occurrence: GB)
  Receive Date: 20241225
  Receipt Date: 20250526
  Transmission Date: 20250717
  Serious: Yes (Hospitalization, Other)
  Sender: Unknown Manufacturer
  Company Number: GB-MHRA-MIDB-0035d326-9be8-4749-b587-7db5022962d1

PATIENT
  Age: 84 Year
  Sex: Male

DRUGS (19)
  1. METFORMIN [Suspect]
     Active Substance: METFORMIN HYDROCHLORIDE
     Indication: Product used for unknown indication
     Dosage: TWICE A DAY
  2. IRBESARTAN [Suspect]
     Active Substance: IRBESARTAN
     Indication: Product used for unknown indication
     Dosage: IN THE MORNING
  3. GLIMEPIRIDE [Suspect]
     Active Substance: GLIMEPIRIDE
     Indication: Product used for unknown indication
     Dosage: IN THE MORNING
  4. FUROSEMIDE [Suspect]
     Active Substance: FUROSEMIDE
     Indication: Product used for unknown indication
  5. LERCANIDIPINE [Suspect]
     Active Substance: LERCANIDIPINE
     Indication: Hypertension
     Dosage: PATIENT STATES HE REMOVES FROM?B^PACK AS GP TOLD HIM TO NOT TAKE IT ~7-10 DAYS AGO - RESTARTED AS BP
  6. ATORVASTATIN [Concomitant]
     Active Substance: ATORVASTATIN
     Indication: Product used for unknown indication
  7. SERTRALINE [Concomitant]
     Active Substance: SERTRALINE HYDROCHLORIDE
     Indication: Product used for unknown indication
  8. GABAPENTIN [Concomitant]
     Active Substance: GABAPENTIN
     Indication: Product used for unknown indication
  9. OXYCODONE [Concomitant]
     Active Substance: OXYCODONE
     Indication: Pain
  10. LANSOPRAZOLE [Concomitant]
     Active Substance: LANSOPRAZOLE
     Indication: Product used for unknown indication
  11. GLYCERIN [Concomitant]
     Active Substance: GLYCERIN
     Indication: Product used for unknown indication
  12. Gaviscon Advance oral suspension peppermint (Forum Health Products Ltd [Concomitant]
     Indication: Product used for unknown indication
  13. EDOXABAN [Concomitant]
     Active Substance: EDOXABAN
     Indication: Product used for unknown indication
     Dosage: REDUCED DUE TO AKI + HELD DUE TO HAEMORRHAGE
  14. ORANGE [Concomitant]
     Active Substance: ORANGE
     Indication: Product used for unknown indication
     Dosage: ORAL POWDER SACHETS SUGAR FREE TAKE ONE BD FOR CONSTIPATION - DOESN^T?NEED CURRENTLY BUT WAS USING P
     Dates: start: 20241210
  15. Calcichew D3 Forte chewable tablets (DE Pharmaceuticals) [Concomitant]
     Indication: Product used for unknown indication
  16. Alendronic acid 70mg tablets (A A H Pharmaceuticals Ltd) [Concomitant]
     Indication: Product used for unknown indication
     Dosage: ON THURSDAYS
  17. Ferrous fumarate 210mg tablets (A A H Pharmaceuticals Ltd) [Concomitant]
     Indication: Product used for unknown indication
  18. ACETAMINOPHEN [Concomitant]
     Active Substance: ACETAMINOPHEN
     Indication: Product used for unknown indication
  19. Co-codamol 30mg/500mg caplets (A A H Pharmaceuticals Ltd) [Concomitant]
     Indication: Product used for unknown indication

REACTIONS (1)
  - Acute kidney injury [Recovered/Resolved]
